FAERS Safety Report 15352015 (Version 6)
Quarter: 2019Q3

REPORT INFORMATION
  Report Type: Report from Study
  Country: JP (occurrence: JP)
  Receive Date: 20180905
  Receipt Date: 20190716
  Transmission Date: 20191004
  Serious: Yes (Hospitalization)
  Sender: FDA-Public Use
  Company Number: JP-ROCHE-2179733

PATIENT
  Age: 46 Year
  Sex: Female
  Weight: 52.9 kg

DRUGS (6)
  1. MAGNESIUM OXIDE. [Concomitant]
     Active Substance: MAGNESIUM OXIDE
     Indication: CONSTIPATION
     Route: 048
     Dates: start: 20180723
  2. CALONAL [Concomitant]
     Active Substance: ACETAMINOPHEN
     Indication: PYREXIA
     Dosage: AT THE SYMPTOM
     Route: 048
     Dates: start: 20180822
  3. BEVACIZUMAB. [Suspect]
     Active Substance: BEVACIZUMAB
     Indication: LUNG ADENOCARCINOMA
     Dosage: 400MG/16ML (15MG/KG)?MOST RECENT DOSE OF BEVACIZUMAB PRIOR TO EVENT: 21/AUG/2018
     Route: 042
     Dates: start: 20180821
  4. FERROUS CITRATE [Concomitant]
     Active Substance: FERROUS CITRATE
     Indication: ANAEMIA
     Route: 048
     Dates: start: 20180723
  5. ATEZOLIZUMAB. [Suspect]
     Active Substance: ATEZOLIZUMAB
     Indication: LUNG ADENOCARCINOMA
     Dosage: MOST RECENT DOSE OF ATEZOLIZUMAB PRIOR TO EVENT: 21/AUG/2018
     Route: 042
     Dates: start: 20180821
  6. CODEINE PHOSPHATE HEMIHYDRATE [Concomitant]
     Active Substance: CODEINE PHOSPHATE
     Indication: COUGH
     Dosage: ONE PACK ONCE
     Route: 048
     Dates: start: 20180723

REACTIONS (2)
  - Lung infection [Recovered/Resolved]
  - Pulmonary haemorrhage [Recovered/Resolved]

NARRATIVE: CASE EVENT DATE: 20180822
